FAERS Safety Report 9218960 (Version 1)
Quarter: 2013Q2

REPORT INFORMATION
  Report Type: Spontaneous
  Country: BR (occurrence: BR)
  Receive Date: 20130409
  Receipt Date: 20130409
  Transmission Date: 20140414
  Serious: Yes (Hospitalization, Other)
  Sender: FDA-Public Use
  Company Number: BR-JNJFOC-20130400339

PATIENT
  Sex: Male

DRUGS (3)
  1. HALDOL [Suspect]
     Indication: SCHIZOPHRENIA
     Route: 065
  2. VENLAFAXINE [Suspect]
     Indication: SCHIZOPHRENIA
     Route: 065
  3. GEODON [Suspect]
     Indication: SCHIZOPHRENIA
     Route: 065

REACTIONS (4)
  - Crohn^s disease [Recovered/Resolved]
  - Intestinal operation [Recovered/Resolved]
  - Oral discomfort [Unknown]
  - Dyskinesia [Unknown]
